FAERS Safety Report 9473225 (Version 1)
Quarter: 2013Q3

REPORT INFORMATION
  Report Type: Spontaneous
  Country: US (occurrence: US)
  Receive Date: 20130823
  Receipt Date: 20130823
  Transmission Date: 20140515
  Serious: No
  Sender: FDA-Public Use
  Company Number: US-BRISTOL-MYERS SQUIBB COMPANY-18792622

PATIENT
  Age: 51 Year
  Sex: Male
  Weight: 114.74 kg

DRUGS (8)
  1. SPRYCEL [Suspect]
     Indication: CHRONIC MYELOID LEUKAEMIA
     Route: 048
     Dates: start: 20130320
  2. AVAPRO [Concomitant]
  3. HUMALOG [Concomitant]
  4. LANTUS [Concomitant]
  5. LIPITOR [Concomitant]
  6. PLAVIX [Concomitant]
  7. SEROQUEL [Concomitant]
  8. VITAMIN D [Concomitant]

REACTIONS (4)
  - Dyspnoea [Unknown]
  - Headache [Unknown]
  - Fatigue [Unknown]
  - Influenza like illness [Unknown]
